FAERS Safety Report 21966012 (Version 3)
Quarter: 2023Q1

REPORT INFORMATION
  Report Type: Report from Study
  Country: None (occurrence: GB)
  Receive Date: 20230208
  Receipt Date: 20230215
  Transmission Date: 20230418
  Serious: Yes (Hospitalization)
  Sender: FDA-Public Use
  Company Number: GB-AKCEA THERAPEUTICS, INC.-2023IS001105

PATIENT
  Age: 61 Year
  Sex: Female

DRUGS (3)
  1. TEGSEDI [Suspect]
     Active Substance: INOTERSEN SODIUM
     Indication: Amyloidosis
     Route: 058
     Dates: start: 202207, end: 202301
  2. DEVICE [Suspect]
     Active Substance: DEVICE
  3. RAMIPRIL [Suspect]
     Active Substance: RAMIPRIL
     Route: 065

REACTIONS (3)
  - Hypersensitivity [Recovering/Resolving]
  - Dyspnoea [Unknown]
  - Swollen tongue [Unknown]
